FAERS Safety Report 18009667 (Version 2)
Quarter: 2021Q2

REPORT INFORMATION
  Report Type: Spontaneous
  Country: CA (occurrence: CA)
  Receive Date: 20200710
  Receipt Date: 20210413
  Transmission Date: 20210717
  Serious: Yes (Hospitalization)
  Sender: FDA-Public Use
  Company Number: CA-PFIZER INC-2020262546

PATIENT
  Age: 41 Year
  Sex: Female

DRUGS (3)
  1. ADVIL [Suspect]
     Active Substance: IBUPROFEN
     Indication: CHEST DISCOMFORT
     Dosage: UNK
     Route: 065
  2. ADVIL [Suspect]
     Active Substance: IBUPROFEN
     Indication: CHEST DISCOMFORT
     Dosage: UNK
     Route: 065
  3. AVELOX [Suspect]
     Active Substance: MOXIFLOXACIN HYDROCHLORIDE
     Indication: PNEUMONIA
     Dosage: 400 MG, 1D
     Route: 042

REACTIONS (4)
  - Cough [Recovered/Resolved]
  - Rash erythematous [Recovered/Resolved]
  - Bronchial hyperreactivity [Recovered/Resolved]
  - Flushing [Recovered/Resolved]
